FAERS Safety Report 5441577-7 (Version None)
Quarter: 2007Q3

REPORT INFORMATION
  Report Type: 
  Country: None (occurrence: None)
  Receive Date: 20070830
  Receipt Date: 20070830
  Transmission Date: 20080115
  Serious: No
  Sender: FDA-Public Use
  Company Number: None

PATIENT
  Sex: Male

DRUGS (1)
  1. DIPRIVAN [Suspect]
     Indication: COLONOSCOPY
     Dosage: 250MG IV
     Route: 042
     Dates: start: 20070821

REACTIONS (2)
  - CHILLS [None]
  - POSTOPERATIVE FEVER [None]
